FAERS Safety Report 5883851-6 (Version None)
Quarter: 2008Q3

REPORT INFORMATION
  Report Type: 
  Country: None (occurrence: None)
  Receive Date: 20080915
  Receipt Date: 20080909
  Transmission Date: 20090109
  Serious: Yes (Death)
  Sender: FDA-Public Use
  Company Number: US-AVENTIS-200814093US

PATIENT
  Sex: Female
  Weight: 61.24 kg

DRUGS (12)
  1. LASIX [Suspect]
     Route: 048
     Dates: start: 20060201, end: 20070601
  2. LASIX [Suspect]
     Route: 048
     Dates: start: 20060201, end: 20070601
  3. LASIX [Suspect]
     Route: 048
     Dates: start: 20060201, end: 20070601
  4. SPIRONOLACTONE [Suspect]
     Dosage: DOSE: UNK
     Dates: start: 20060201
  5. POTASSIUM CHLORIDE [Concomitant]
     Dates: end: 20060201
  6. COUMADIN [Concomitant]
     Dosage: DOSE: UNK
  7. COREG [Concomitant]
     Dosage: DOSE: UNK
  8. MAVIK [Concomitant]
     Dosage: DOSE: UNK
  9. DIGITEK [Concomitant]
  10. CARDIOVASCULAR SYSTEM DRUGS [Concomitant]
     Dosage: DOSE: UNK
  11. LOPRESSOR [Concomitant]
  12. ENALAPRIL MALEATE [Concomitant]

REACTIONS (7)
  - DEATH [None]
  - DIARRHOEA [None]
  - HEART RATE INCREASED [None]
  - HYPOKALAEMIA [None]
  - HYPOTENSION [None]
  - PITTING OEDEMA [None]
  - SWELLING [None]
